FAERS Safety Report 5337964-8 (Version None)
Quarter: 2007Q2

REPORT INFORMATION
  Report Type: 
  Country: None (occurrence: None)
  Receive Date: 20070530
  Receipt Date: 20070523
  Transmission Date: 20071010
  Serious: Yes (Other)
  Sender: FDA-Public Use
  Company Number: PHMT2007CA01283

PATIENT
  Age: 91 Year
  Sex: Female

DRUGS (1)
  1. ZOMETA [Suspect]
     Indication: METASTASES TO BONE
     Dosage: 4 MG EVERY MONTH
     Route: 042
     Dates: start: 20010101, end: 20070401

REACTIONS (2)
  - GINGIVAL EROSION [None]
  - OSTEONECROSIS [None]
